FAERS Safety Report 15548036 (Version 3)
Quarter: 2018Q4

REPORT INFORMATION
  Report Type: Spontaneous
  Country: IT (occurrence: IT)
  Receive Date: 20181024
  Receipt Date: 20181121
  Transmission Date: 20190205
  Serious: Yes (Other)
  Sender: FDA-Public Use
  Company Number: IT-PTC THERAPEUTICS, INC.-IT-2018PTC001057

PATIENT

DRUGS (4)
  1. DEFLAZACORT [Concomitant]
     Active Substance: DEFLAZACORT
     Dosage: 36.39 MG, QD
     Dates: start: 20180107
  2. DEFLAZACORT [Concomitant]
     Active Substance: DEFLAZACORT
     Indication: PRODUCT USED FOR UNKNOWN INDICATION
     Dosage: 36.39 MG, QD
     Dates: start: 20171121
  3. TRANSLARNA [Suspect]
     Active Substance: ATALUREN
     Indication: DUCHENNE MUSCULAR DYSTROPHY
     Dosage: 375 MG MORNING-375 MG AFTERNOON, 875 MG EVENING
     Dates: start: 20151220
  4. DIDROGYL [Concomitant]
     Active Substance: CALCIFEDIOL
     Indication: PRODUCT USED FOR UNKNOWN INDICATION
     Dosage: 7 DROPS DAILY
     Dates: start: 20180107

REACTIONS (2)
  - Tibia fracture [Recovered/Resolved]
  - Fall [Recovered/Resolved]

NARRATIVE: CASE EVENT DATE: 20180104
